FAERS Safety Report 9627419 (Version 1)
Quarter: 2013Q4

REPORT INFORMATION
  Report Type: Not Available
  Country: US (occurrence: US)
  Receive Date: 20131016
  Receipt Date: 20131016
  Transmission Date: 20140711
  Serious: Yes (Hospitalization)
  Sender: FDA-Public Use
  Company Number: US-LUNDBECK-DKLU1087473

PATIENT
  Age: 3 Year
  Sex: Female

DRUGS (2)
  1. SABRIL (TABLET) [Suspect]
     Indication: INFANTILE SPASMS
     Dosage: 1/2 TAB
     Dates: start: 20100107
  2. ACTH [Concomitant]
     Indication: PRODUCT USED FOR UNKNOWN INDICATION

REACTIONS (2)
  - Convulsion [Unknown]
  - Influenza [Unknown]
